FAERS Safety Report 25347886 (Version 2)
Quarter: 2025Q2

REPORT INFORMATION
  Report Type: Spontaneous
  Country: DE (occurrence: DE)
  Receive Date: 20250522
  Receipt Date: 20250527
  Transmission Date: 20250717
  Serious: Yes (Hospitalization, Other)
  Sender: MYLAN
  Company Number: DE-MYLANLABS-2025M1042919

PATIENT
  Sex: Male

DRUGS (4)
  1. LEVETIRACETAM [Suspect]
     Active Substance: LEVETIRACETAM
     Indication: Generalised tonic-clonic seizure
     Dosage: 500 MILLIGRAM, BID
     Dates: end: 2017
  2. LAMOTRIGINE [Interacting]
     Active Substance: LAMOTRIGINE
     Indication: Generalised tonic-clonic seizure
     Dosage: 100 MILLIGRAM, BID
     Dates: start: 2017
  3. LAMOTRIGINE [Interacting]
     Active Substance: LAMOTRIGINE
     Dosage: 150 MILLIGRAM, BID
  4. METAMIZOLE [Interacting]
     Active Substance: METAMIZOLE
     Indication: Procedural pain
     Dosage: 100 MILLIGRAM, TID
     Dates: start: 2024

REACTIONS (3)
  - Drug level decreased [Recovering/Resolving]
  - Drug interaction [Recovering/Resolving]
  - Drug ineffective [Unknown]

NARRATIVE: CASE EVENT DATE: 20240101
